FAERS Safety Report 19834575 (Version 1)
Quarter: 2021Q3

REPORT INFORMATION
  Report Type: Other
  Country: US (occurrence: US)
  Receive Date: 20210915
  Receipt Date: 20210915
  Transmission Date: 20211014
  Serious: No
  Sender: FDA-Public Use
  Company Number: US-LEADIANT BIOSCIENCES INC-2020STPI000338

PATIENT
  Sex: Female

DRUGS (1)
  1. MATULANE [Suspect]
     Active Substance: PROCARBAZINE HYDROCHLORIDE
     Indication: LYMPHOMA
     Dosage: 50 MILLIGRAM, 3 CAPSULES DAILY ON DAYS 1 TO 14 OF EACH 28 DAY CYCLE
     Route: 048
     Dates: start: 20200403

REACTIONS (1)
  - Respiratory disorder [Unknown]
